FAERS Safety Report 7675304-X (Version None)
Quarter: 2011Q3

REPORT INFORMATION
  Report Type: 
  Country: None (occurrence: None)
  Receive Date: 20110810
  Receipt Date: 20110801
  Transmission Date: 20111222
  Serious: Yes (Other)
  Sender: FDA-Public Use
  Company Number: US-ELI_LILLY_AND_COMPANY-US201108002138

PATIENT
  Sex: Male

DRUGS (11)
  1. LORATINE [Concomitant]
     Dosage: 10 MG, QD
     Route: 065
  2. EFFIENT [Suspect]
     Indication: STENT PLACEMENT
     Dosage: 60 MG, (LOADING DOSE)
     Route: 065
     Dates: start: 20110728
  3. EFFIENT [Suspect]
     Dosage: 10 MG, UNKNOWN
     Route: 065
     Dates: start: 20110729
  4. FUROSEMIDE [Concomitant]
     Dosage: 80 MG, QD
     Route: 065
  5. LANTUS [Concomitant]
     Dosage: 25 U, BID
     Route: 065
  6. METFORMIN HCL [Concomitant]
     Dosage: 1000 MG, QD
     Route: 065
  7. GLIPIZIDE [Concomitant]
     Dosage: 10 MG, BID
     Route: 065
  8. ASPAC                              /00020001/ [Concomitant]
     Dosage: 81 MG, QD
     Route: 065
  9. LISINOPRIL [Concomitant]
     Dosage: 20 MG, QD
     Route: 065
  10. LOVASTATIN [Concomitant]
     Dosage: 40 MG, QD
     Route: 065
  11. METOPROLOL TARTRATE [Concomitant]
     Dosage: 50 MG, BID
     Route: 065

REACTIONS (4)
  - LOSS OF CONSCIOUSNESS [None]
  - INCORRECT STORAGE OF DRUG [None]
  - DIZZINESS [None]
  - URINE ABNORMALITY [None]
